FAERS Safety Report 11089108 (Version 1)
Quarter: 2015Q2

REPORT INFORMATION
  Report Type: Spontaneous
  Country: US (occurrence: US)
  Receive Date: 20150505
  Receipt Date: 20150505
  Transmission Date: 20150821
  Serious: Yes (Hospitalization, Other)
  Sender: FDA-Public Use
  Company Number: US-AMGEN-USASP2015042201

PATIENT
  Age: 63 Year
  Sex: Female

DRUGS (1)
  1. ENBREL [Suspect]
     Active Substance: ETANERCEPT
     Indication: RHEUMATOID ARTHRITIS
     Dosage: 50 MG, QWK
     Route: 065
     Dates: start: 20020601

REACTIONS (8)
  - Rheumatoid arthritis [Recovered/Resolved]
  - Hip arthroplasty [Recovered/Resolved]
  - Skin discolouration [Not Recovered/Not Resolved]
  - Vomiting [Not Recovered/Not Resolved]
  - Cellulitis [Recovered/Resolved]
  - Hypoacusis [Not Recovered/Not Resolved]
  - Osteoarthritis [Recovered/Resolved]
  - Influenza like illness [Not Recovered/Not Resolved]

NARRATIVE: CASE EVENT DATE: 2012
